FAERS Safety Report 19013011 (Version 1)
Quarter: 2021Q1

REPORT INFORMATION
  Report Type: Report from Study
  Country: DE (occurrence: DE)
  Receive Date: 20210316
  Receipt Date: 20210316
  Transmission Date: 20210420
  Serious: Yes (Hospitalization)
  Sender: FDA-Public Use
  Company Number: DE-GLAXOSMITHKLINE-DE2021EME059964

PATIENT
  Age: 80 Year
  Sex: Female

DRUGS (1)
  1. NIRAPARIB [Suspect]
     Active Substance: NIRAPARIB
     Indication: CERVIX CARCINOMA
     Dosage: 1 DF, QD (1 TABLET DAILY)
     Dates: start: 20210114, end: 202102

REACTIONS (3)
  - Blood count abnormal [Recovering/Resolving]
  - Platelet count abnormal [Recovering/Resolving]
  - Product use in unapproved indication [Unknown]

NARRATIVE: CASE EVENT DATE: 202101
